FAERS Safety Report 7718688-6 (Version None)
Quarter: 2011Q3

REPORT INFORMATION
  Report Type: 
  Country: None (occurrence: None)
  Receive Date: 20110824
  Receipt Date: 20110809
  Transmission Date: 20111222
  Serious: No
  Sender: FDA-Public Use
  Company Number: B0740944A

PATIENT
  Age: 45 Year
  Sex: Female

DRUGS (5)
  1. TENOFOVIR DISOPROXIL FUMARATE [Suspect]
     Indication: HIV INFECTION
  2. EMTRICITABINE [Suspect]
     Indication: HIV INFECTION
  3. ATAZANAVIR [Suspect]
     Indication: HIV INFECTION
  4. LOPINAVIR AND RITONAVIR [Suspect]
     Indication: HIV INFECTION
  5. ABACAVIR SULFATE AND LAMIVUDINE [Suspect]
     Indication: HIV INFECTION

REACTIONS (3)
  - ANGINA PECTORIS [None]
  - CORONARY ARTERY STENOSIS [None]
  - ARTERIOSCLEROSIS CORONARY ARTERY [None]
